FAERS Safety Report 15539440 (Version 2)
Quarter: 2019Q2

REPORT INFORMATION
  Report Type: Report from Study
  Country: SE (occurrence: SE)
  Receive Date: 20181023
  Receipt Date: 20190523
  Transmission Date: 20190711
  Serious: Yes (Hospitalization)
  Sender: FDA-Public Use
  Company Number: SE-BRISTOL-MYERS SQUIBB COMPANY-BMS-2018-078781

PATIENT
  Age: 52 Year
  Sex: Male

DRUGS (6)
  1. APIXABAN [Suspect]
     Active Substance: APIXABAN
     Indication: CEREBROVASCULAR ACCIDENT PROPHYLAXIS
     Dosage: 5 MILLIGRAM, BID
     Route: 065
     Dates: start: 20180713, end: 20180808
  2. FELODIPIN [Concomitant]
     Active Substance: FELODIPINE
     Indication: BLOOD PRESSURE DECREASED
     Dosage: 10 MG, UNK
     Route: 065
     Dates: start: 20160801
  3. BISOPROLOL [Concomitant]
     Active Substance: BISOPROLOL
     Indication: BLOOD PRESSURE DECREASED
     Dosage: 5 MG, UNK
     Route: 065
     Dates: start: 20180826
  4. APIXABAN [Suspect]
     Active Substance: APIXABAN
     Indication: PRODUCT USED FOR UNKNOWN INDICATION
     Dosage: 10 UNK
     Route: 065
     Dates: start: 20180814
  5. ENALAPRIL COMP [Concomitant]
     Active Substance: ENALAPRIL MALEATE\HYDROCHLOROTHIAZIDE
     Indication: BLOOD PRESSURE DECREASED
     Dosage: 20 MG, UNK
     Route: 065
     Dates: start: 20160501
  6. METOPROLOL. [Concomitant]
     Active Substance: METOPROLOL
     Indication: PRODUCT USED FOR UNKNOWN INDICATION
     Dosage: UNK
     Route: 065
     Dates: start: 20180301, end: 20180825

REACTIONS (4)
  - Hepatic pain [Not Recovered/Not Resolved]
  - Liver disorder [Unknown]
  - Prescribed overdose [Unknown]
  - Tinnitus [Unknown]

NARRATIVE: CASE EVENT DATE: 20180714
